FAERS Safety Report 22160231 (Version 1)
Quarter: 2023Q1

REPORT INFORMATION
  Report Type: Spontaneous
  Country: US (occurrence: US)
  Receive Date: 20230331
  Receipt Date: 20230331
  Transmission Date: 20230418
  Serious: No
  Sender: FDA-Public Use
  Company Number: US-drreddys-SPO/USA/23/0161241

PATIENT
  Sex: Male

DRUGS (1)
  1. DOANS EXTRA STRENGTH [Suspect]
     Active Substance: MAGNESIUM SALICYLATE
     Indication: Back pain

REACTIONS (7)
  - Back pain [Unknown]
  - Crepitations [Unknown]
  - Gait inability [Unknown]
  - Asthenia [Unknown]
  - Muscle spasms [Unknown]
  - Drug ineffective [Unknown]
  - Product quality issue [Unknown]
